FAERS Safety Report 7904555-1 (Version None)
Quarter: 2011Q4

REPORT INFORMATION
  Report Type: 
  Country: None (occurrence: None)
  Receive Date: 20111109
  Receipt Date: 20111026
  Transmission Date: 20120403
  Serious: Yes (Death, Hospitalization)
  Sender: FDA-Public Use
  Company Number: US-ACTELION-A-NJ2011-56214

PATIENT

DRUGS (4)
  1. REVATIO [Concomitant]
  2. VENTAVIS [Suspect]
     Indication: PULMONARY ARTERIAL HYPERTENSION
     Dosage: UNK
     Route: 055
     Dates: start: 20101201, end: 20111001
  3. COUMADIN [Concomitant]
  4. OXYGEN [Concomitant]

REACTIONS (2)
  - ENDOMETRIAL CANCER [None]
  - HIP FRACTURE [None]
